FAERS Safety Report 6657813-5 (Version None)
Quarter: 2010Q1

REPORT INFORMATION
  Report Type: 
  Country: None (occurrence: None)
  Receive Date: 20100330
  Receipt Date: 20100317
  Transmission Date: 20100710
  Serious: Yes (Hospitalization, Disabling, Other)
  Sender: FDA-Public Use
  Company Number: US-ELI_LILLY_AND_COMPANY-US200911005922

PATIENT
  Sex: Male
  Weight: 95.692 kg

DRUGS (6)
  1. ZYPREXA [Suspect]
     Dosage: 10 MG, DAILY (1/D)
     Dates: start: 20070425, end: 20070906
  2. ZYPREXA [Suspect]
     Dosage: 50 MG, EACH EVENING
  3. CYMBALTA [Concomitant]
     Dosage: 90 MG, DAILY (1/D)
     Dates: start: 20050309, end: 20070730
  4. CYMBALTA [Concomitant]
     Dosage: 30 MG, DAILY (1/D)
  5. CYMBALTA [Concomitant]
     Dosage: 60 MG, UNK
  6. CLONAZEPAM [Concomitant]
     Dosage: 1 MG, 2/D

REACTIONS (9)
  - BLOOD CHOLESTEROL INCREASED [None]
  - BLOOD GLUCOSE INCREASED [None]
  - BLOOD TRIGLYCERIDES INCREASED [None]
  - DIABETES WITH HYPEROSMOLARITY [None]
  - HYPERTENSION [None]
  - HYPONATRAEMIA [None]
  - OVERDOSE [None]
  - TYPE 2 DIABETES MELLITUS [None]
  - WEIGHT INCREASED [None]
